FAERS Safety Report 7692249-X (Version None)
Quarter: 2011Q3

REPORT INFORMATION
  Report Type: 
  Country: None (occurrence: None)
  Receive Date: 20110818
  Receipt Date: 20110808
  Transmission Date: 20111222
  Serious: Yes (Hospitalization)
  Sender: FDA-Public Use
  Company Number: US-NOVOPROD-333263

PATIENT
  Sex: Female
  Weight: 90.703 kg

DRUGS (5)
  1. LEVEMIR [Suspect]
     Dosage: 14 U, QD
  2. LEVEMIR [Suspect]
     Indication: TYPE 2 DIABETES MELLITUS
     Dosage: 14 U, QD
     Route: 058
  3. VICTOZA [Suspect]
     Indication: TYPE 2 DIABETES MELLITUS
     Dosage: 1.8 MG, QD
     Route: 058
     Dates: start: 20110401, end: 20110601
  4. VICTOZA [Suspect]
     Dosage: 1.8 MG, QID
     Dates: start: 20110601
  5. LEVEMIR [Suspect]
     Dosage: UNKNOWN

REACTIONS (6)
  - DEHYDRATION [None]
  - BACK PAIN [None]
  - WEIGHT DECREASED [None]
  - BLOOD GLUCOSE INCREASED [None]
  - FEELING ABNORMAL [None]
  - INCORRECT DOSE ADMINISTERED [None]
